FAERS Safety Report 18927702 (Version 2)
Quarter: 2021Q2

REPORT INFORMATION
  Report Type: Spontaneous
  Country: SK (occurrence: SK)
  Receive Date: 20210223
  Receipt Date: 20210420
  Transmission Date: 20210717
  Serious: Yes (Other)
  Sender: FDA-Public Use
  Company Number: SK-BAYER-2021-044972

PATIENT
  Age: 29 Year
  Sex: Female
  Weight: 63 kg

DRUGS (1)
  1. MIRENA [Suspect]
     Active Substance: LEVONORGESTREL
     Dosage: 20 ?G PER DAY, CONTINUOUSLY
     Route: 015
     Dates: start: 20191017, end: 20210118

REACTIONS (10)
  - Haemorrhage in pregnancy [None]
  - Device defective [None]
  - Vaginal haemorrhage [None]
  - Ectopic pregnancy with contraceptive device [None]
  - Haemoperitoneum [None]
  - Device expulsion [Recovered/Resolved]
  - Vaginal discharge [None]
  - Groin pain [None]
  - Drug ineffective [None]
  - Pelvic pain [None]

NARRATIVE: CASE EVENT DATE: 20210118
